FAERS Safety Report 5350736-3 (Version None)
Quarter: 2007Q2

REPORT INFORMATION
  Report Type: 
  Country: None (occurrence: None)
  Receive Date: 20070606
  Receipt Date: 20070606
  Transmission Date: 20071010
  Serious: Yes (Death)
  Sender: FDA-Public Use
  Company Number: None

PATIENT
  Age: 31 Year
  Sex: Male
  Weight: 87.9978 kg

DRUGS (1)
  1. OXYCODONE 60 MG ABG-PURDUE [Suspect]
     Indication: BACK PAIN
     Dosage: PO
     Route: 048
     Dates: start: 20061201, end: 20061204

REACTIONS (1)
  - OVERDOSE [None]
